FAERS Safety Report 4968107-8 (Version None)
Quarter: 2006Q1

REPORT INFORMATION
  Report Type: 
  Country: None (occurrence: None)
  Receive Date: 20060201
  Receipt Date: 20051230
  Transmission Date: 20060701
  Serious: No
  Sender: FDA-Public Use
  Company Number: 2006PV006433

PATIENT
  Age: 67 Year
  Sex: Female

DRUGS (9)
  1. BYETTA [Suspect]
     Indication: DIABETES MELLITUS NON-INSULIN-DEPENDENT
     Dosage: 5 MCG;BID;SC
     Route: 058
     Dates: start: 20051216
  2. AVANDIA [Concomitant]
  3. ACEON [Concomitant]
  4. STARLIX [Concomitant]
  5. LESCOL XL [Concomitant]
  6. ZERIA [Concomitant]
  7. LEXAPRO [Concomitant]
  8. ASPIRIN [Concomitant]
  9. GLUCOVANCE [Concomitant]

REACTIONS (5)
  - ASTHENIA [None]
  - CHILLS [None]
  - DIARRHOEA [None]
  - NAUSEA [None]
  - VOMITING [None]
